FAERS Safety Report 10688057 (Version 1)
Quarter: 2015Q1

REPORT INFORMATION
  Report Type: Spontaneous
  Country: FR (occurrence: FR)
  Receive Date: 20150102
  Receipt Date: 20150102
  Transmission Date: 20150720
  Serious: Yes (Hospitalization)
  Sender: FDA-Public Use
  Company Number: FR-PFIZER INC-2014358417

PATIENT
  Age: 93 Year
  Sex: Female

DRUGS (7)
  1. STABLON [Concomitant]
     Active Substance: TIANEPTINE
  2. AMIODARONE [Concomitant]
     Active Substance: AMIODARONE
  3. CETORNAN [Concomitant]
  4. ALDACTONE [Suspect]
     Active Substance: SPIRONOLACTONE
     Dosage: 50 MG, DAILY
     Route: 048
     Dates: end: 20080906
  5. LASILIX [Suspect]
     Active Substance: FUROSEMIDE
     Dosage: 40 MG, DAILY
     Route: 048
     Dates: end: 20080906
  6. OMEPRAZOLE. [Concomitant]
     Active Substance: OMEPRAZOLE
  7. TRIATEC [Concomitant]
     Active Substance: RAMIPRIL

REACTIONS (1)
  - Dehydration [Recovered/Resolved]

NARRATIVE: CASE EVENT DATE: 20080906
